FAERS Safety Report 9653342 (Version 1)
Quarter: 2013Q4

REPORT INFORMATION
  Report Type: Spontaneous
  Country: US (occurrence: US)
  Receive Date: 20131029
  Receipt Date: 20131029
  Transmission Date: 20140711
  Serious: Yes (Other)
  Sender: FDA-Public Use
  Company Number: US-BAYER-2013-129850

PATIENT
  Age: 22 Year
  Sex: Female

DRUGS (1)
  1. MIRENA [Suspect]
     Indication: CONTRACEPTION
     Dosage: 20 MCG/24HR, CONT
     Route: 015
     Dates: start: 20131009

REACTIONS (7)
  - Convulsion [None]
  - Syncope [None]
  - Bradycardia [None]
  - Eye movement disorder [None]
  - Unresponsive to stimuli [None]
  - Hyperhidrosis [None]
  - Asthenia [None]
